FAERS Safety Report 9932285 (Version 2)
Quarter: 2014Q1

REPORT INFORMATION
  Report Type: Report from Study
  Country: US (occurrence: US)
  Receive Date: 20140228
  Receipt Date: 20140228
  Transmission Date: 20141002
  Serious: No
  Sender: FDA-Public Use
  Company Number: US-ABBVIE-13P-163-1161375-00

PATIENT
  Sex: Male
  Weight: 115.77 kg

DRUGS (3)
  1. ANDROGEL [Suspect]
     Indication: BLOOD TESTOSTERONE DECREASED
     Dosage: 4 PUMPS
     Route: 061
     Dates: start: 2010, end: 201304
  2. ANDROGEL [Suspect]
     Dosage: 6 PUMPS
     Route: 061
     Dates: start: 201304
  3. LISINOPRIL [Concomitant]
     Indication: HYPERTENSION

REACTIONS (5)
  - Sexual dysfunction [Not Recovered/Not Resolved]
  - Nervousness [Not Recovered/Not Resolved]
  - Weight increased [Not Recovered/Not Resolved]
  - Arthropathy [Not Recovered/Not Resolved]
  - Drug effect decreased [Not Recovered/Not Resolved]
